FAERS Safety Report 20547506 (Version 1)
Quarter: 2022Q1

REPORT INFORMATION
  Report Type: Spontaneous
  Country: RU (occurrence: RU)
  Receive Date: 20220303
  Receipt Date: 20220303
  Transmission Date: 20220423
  Serious: Yes (Other)
  Sender: FDA-Public Use
  Company Number: RU-ABBOTT-2022A-1346256

PATIENT
  Age: 2 Year
  Sex: Male
  Weight: 13 kg

DRUGS (4)
  1. CREON [Suspect]
     Active Substance: PANCRELIPASE AMYLASE\PANCRELIPASE LIPASE\PANCRELIPASE PROTEASE
     Indication: Pancreatic enzyme replacement therapy
     Dosage: 18 CAPSULES PER DAY, 3 CAPSULES 6 TIMES A DAY; DAILY DOSE: 180000 IU (INTERNATIONAL UNIT)
     Route: 048
     Dates: start: 20200427, end: 20200428
  2. PULMOZYME [Concomitant]
     Active Substance: DORNASE ALFA
     Indication: Cystic fibrosis
     Dosage: DAILY DOSE: 2.5 MILLIGRAM
     Route: 055
     Dates: start: 20171212, end: 20200512
  3. URSODIOL [Concomitant]
     Active Substance: URSODIOL
     Indication: Cholestasis
     Dosage: DAILY DOSE: 5.0 MICROMOLE PER MILLIGRAM
     Route: 048
     Dates: start: 20180313, end: 20200512
  4. ACETYLCYSTEINE CANON [Concomitant]
     Indication: Productive cough
     Dosage: DAILY DOSE: 200 MILLIGRAM
     Route: 048
     Dates: start: 20180313, end: 20200512

REACTIONS (2)
  - Dermatitis allergic [Recovered/Resolved]
  - Therapeutic response changed [Recovered/Resolved]

NARRATIVE: CASE EVENT DATE: 20200428
